FAERS Safety Report 13329568 (Version 2)
Quarter: 2017Q2

REPORT INFORMATION
  Report Type: Spontaneous
  Country: US (occurrence: US)
  Receive Date: 20170313
  Receipt Date: 20170410
  Transmission Date: 20170830
  Serious: Yes (Other)
  Sender: FDA-Public Use
  Company Number: US-GLAXOSMITHKLINE-US2017034247

PATIENT
  Sex: Male
  Weight: 75 kg

DRUGS (8)
  1. INCRUSE ELLIPTA [Suspect]
     Active Substance: UMECLIDINIUM BROMIDE
     Indication: ASTHMA
     Dosage: 1 PUFF(S), 1D
     Route: 055
     Dates: start: 20170115, end: 20170303
  2. SYMBICORT [Concomitant]
     Active Substance: BUDESONIDE\FORMOTEROL FUMARATE DIHYDRATE
  3. PROSCAR [Concomitant]
     Active Substance: FINASTERIDE
  4. PERIOSTAT [Concomitant]
     Active Substance: DOXYCYCLINE HYCLATE
  5. SPIRIVA [Concomitant]
     Active Substance: TIOTROPIUM BROMIDE MONOHYDRATE
  6. SYNTHROID [Concomitant]
     Active Substance: LEVOTHYROXINE SODIUM
  7. PEPCID [Concomitant]
     Active Substance: FAMOTIDINE
  8. ASPIRIN. [Concomitant]
     Active Substance: ASPIRIN

REACTIONS (12)
  - Aphthous ulcer [Unknown]
  - Fungal infection [Recovering/Resolving]
  - Product use in unapproved indication [Unknown]
  - Laryngitis fungal [Unknown]
  - Mass [Unknown]
  - Tongue ulceration [Unknown]
  - Glossodynia [Recovering/Resolving]
  - Oropharyngeal pain [Unknown]
  - Oral candidiasis [Unknown]
  - Tongue disorder [Recovering/Resolving]
  - Glossitis [Recovering/Resolving]
  - Laryngeal disorder [Recovering/Resolving]
